FAERS Safety Report 9314280 (Version 1)
Quarter: 2013Q2

REPORT INFORMATION
  Report Type: Spontaneous
  Country: FR (occurrence: FR)
  Receive Date: 20130529
  Receipt Date: 20130529
  Transmission Date: 20140414
  Serious: Yes (Other)
  Sender: FDA-Public Use
  Company Number: PHHY2013FR048481

PATIENT
  Age: 72 Year
  Sex: Male

DRUGS (2)
  1. SANDOSTATINE LAR [Suspect]
     Dosage: UNK UKN, UNK
  2. COLCHICINE [Suspect]
     Dosage: UNK UKN, UNK

REACTIONS (3)
  - Gamma-glutamyltransferase increased [Not Recovered/Not Resolved]
  - Wrong technique in drug usage process [Unknown]
  - Transaminases increased [Not Recovered/Not Resolved]
